FAERS Safety Report 4699308-4 (Version None)
Quarter: 2005Q2

REPORT INFORMATION
  Report Type: 
  Country: None (occurrence: None)
  Receive Date: 20050622
  Receipt Date: 20050613
  Transmission Date: 20051028
  Serious: Yes (Hospitalization)
  Sender: FDA-Public Use
  Company Number: 2005076431

PATIENT
  Age: 66 Year
  Sex: Female
  Weight: 38.1022 kg

DRUGS (4)
  1. NEURONTIN [Suspect]
     Indication: BACK PAIN
     Dosage: 900 MG (600 MG, 1/2 TABLET 3 TIMES DAILY), ORAL
     Route: 048
     Dates: start: 20050101
  2. DOMPERIDONE (DOMPERIDONE) [Concomitant]
  3. MIST CARMINATIVE (CAMPHOR, CARDAMOM OIL, RHIZOMA ZINGIBERAE, TINCTURA [Concomitant]
  4. DICLOFENAC SODIUM [Concomitant]

REACTIONS (1)
  - DEEP VEIN THROMBOSIS [None]
